FAERS Safety Report 7354961-1 (Version None)
Quarter: 2011Q1

REPORT INFORMATION
  Report Type: 
  Country: None (occurrence: None)
  Receive Date: 20110307
  Receipt Date: 20110225
  Transmission Date: 20110831
  Serious: Yes (Hospitalization)
  Sender: FDA-Public Use
  Company Number: 7040622

PATIENT
  Age: 80 Year
  Sex: Male

DRUGS (1)
  1. LEVOTHYROX 75 (LEVOTHYROXINE SODIUM) (75 MICROGRAM, TABLET) (LEVOTHYRO [Suspect]
     Indication: HYPOTHYROIDISM
     Dosage: ORAL
     Route: 048

REACTIONS (4)
  - THYROID DISORDER [None]
  - PRODUCT QUALITY ISSUE [None]
  - DRUG INEFFECTIVE [None]
  - BLOOD THYROID STIMULATING HORMONE INCREASED [None]
